FAERS Safety Report 12823626 (Version 2)
Quarter: 2016Q4

REPORT INFORMATION
  Report Type: Spontaneous
  Country: DZ (occurrence: DZ)
  Receive Date: 20161006
  Receipt Date: 20161108
  Transmission Date: 20170207
  Serious: Yes (Death)
  Sender: FDA-Public Use
  Company Number: DZ-INDIVIOR LIMITED-INDV-095332-2016

PATIENT
  Age: 48 Year
  Sex: Male

DRUGS (3)
  1. TEMGESIC [Suspect]
     Active Substance: BUPRENORPHINE HYDROCHLORIDE
     Indication: PRODUCT USED FOR UNKNOWN INDICATION
     Dosage: 0.2 MG TWICE DAILY
     Route: 065
  2. TEMGESIC [Suspect]
     Active Substance: BUPRENORPHINE HYDROCHLORIDE
     Dosage: TEMGESIC PATCH
     Route: 062
  3. TEMGESIC 0.3MG INJECTION [Suspect]
     Active Substance: BUPRENORPHINE HYDROCHLORIDE
     Indication: PRODUCT USED FOR UNKNOWN INDICATION
     Dosage: UNK
     Route: 058

REACTIONS (8)
  - Metastases to central nervous system [Fatal]
  - Dermatitis contact [Unknown]
  - Dermatitis exfoliative [Unknown]
  - Oral mucosa erosion [Unknown]
  - Anaemia [Unknown]
  - Malignant neoplasm progression [Fatal]
  - General physical condition abnormal [None]
  - Lung cancer metastatic [Fatal]
